FAERS Safety Report 16479076 (Version 1)
Quarter: 2019Q2

REPORT INFORMATION
  Report Type: Spontaneous
  Country: US (occurrence: US)
  Receive Date: 20190626
  Receipt Date: 20190626
  Transmission Date: 20190711
  Serious: Yes (Other)
  Sender: FDA-Public Use
  Company Number: US-SAOL THERAPEUTICS-2018SAO00868

PATIENT
  Age: 19 Year
  Sex: Female

DRUGS (1)
  1. LIORESAL [Suspect]
     Active Substance: BACLOFEN
     Indication: MUSCLE SPASTICITY
     Dosage: ~600 ?G, \DAY
     Route: 037

REACTIONS (2)
  - Skin abrasion [Unknown]
  - Implant site infection [Unknown]

NARRATIVE: CASE EVENT DATE: 201806
